FAERS Safety Report 6085997-9 (Version None)
Quarter: 2009Q1

REPORT INFORMATION
  Report Type: 
  Country: None (occurrence: None)
  Receive Date: 20090218
  Receipt Date: 20090218
  Transmission Date: 20090719
  Serious: Yes (Death)
  Sender: FDA-Public Use
  Company Number: None

PATIENT
  Age: 39 Year
  Sex: Male
  Weight: 68.0396 kg

DRUGS (1)
  1. METHADONE HCL [Suspect]
     Indication: HOMICIDE
     Dosage: 20 PO HOURS
     Route: 048
     Dates: start: 20080817, end: 20080817

REACTIONS (1)
  - VICTIM OF CRIME [None]
